FAERS Safety Report 7955145-6 (Version None)
Quarter: 2011Q4

REPORT INFORMATION
  Report Type: 
  Country: None (occurrence: None)
  Receive Date: 20111202
  Receipt Date: 20111128
  Transmission Date: 20120403
  Serious: Yes (Other)
  Sender: FDA-Public Use
  Company Number: US-CEPHALON-US023847

PATIENT

DRUGS (1)
  1. GABITRIL [Suspect]
     Route: 048

REACTIONS (1)
  - CONVULSION [None]
